FAERS Safety Report 6506554-3 (Version None)
Quarter: 2009Q4

REPORT INFORMATION
  Report Type: 
  Country: None (occurrence: None)
  Receive Date: 20091221
  Receipt Date: 20091211
  Transmission Date: 20100525
  Serious: Yes (Other)
  Sender: FDA-Public Use
  Company Number: IN-JNJFOC-20091203999

PATIENT
  Age: 50 Year
  Sex: Female

DRUGS (4)
  1. URISPAS [Suspect]
     Indication: URGE INCONTINENCE
     Route: 065
  2. OFLOXACIN [Concomitant]
     Route: 048
  3. INDAPAMIDE [Concomitant]
     Route: 048
  4. PROPRANOLOL [Concomitant]
     Route: 048

REACTIONS (2)
  - GLAUCOMA [None]
  - PALPITATIONS [None]
